FAERS Safety Report 15318395 (Version 1)
Quarter: 2018Q3

REPORT INFORMATION
  Report Type: Spontaneous
  Country: US (occurrence: US)
  Receive Date: 20180817
  Receipt Date: 20180817
  Transmission Date: 20181010
  Serious: Yes (Hospitalization)
  Sender: FDA-Public Use
  Company Number: None

PATIENT
  Age: 76 Year
  Sex: Male
  Weight: 96.21 kg

DRUGS (1)
  1. YESCARTA [Suspect]
     Active Substance: AXICABTAGENE CILOLEUCEL
     Indication: DIFFUSE LARGE B-CELL LYMPHOMA
     Dates: start: 20180514

REACTIONS (11)
  - Neurotoxicity [None]
  - Dysarthria [None]
  - Diplopia [None]
  - Neutropenia [None]
  - Thrombophlebitis [None]
  - Hypogammaglobulinaemia [None]
  - Deep vein thrombosis [None]
  - Cytokine release syndrome [None]
  - Thrombocytopenia [None]
  - Anaemia [None]
  - Orthostatic hypotension [None]
